FAERS Safety Report 8549661-6 (Version None)
Quarter: 2012Q3

REPORT INFORMATION
  Report Type: 
  Country: None (occurrence: None)
  Receive Date: 20120730
  Receipt Date: 20120718
  Transmission Date: 20120928
  Serious: Yes (Other)
  Sender: FDA-Public Use
  Company Number: FR-AMGEN-FRASP2012004480

PATIENT
  Age: 2 Year
  Sex: Female

DRUGS (1)
  1. ENBREL [Suspect]
     Indication: JUVENILE ARTHRITIS
     Dosage: 8 MG, WEEKLY

REACTIONS (3)
  - ECZEMA [None]
  - WRONG TECHNIQUE IN DRUG USAGE PROCESS [None]
  - TONSILLITIS [None]
